FAERS Safety Report 6115647-4 (Version None)
Quarter: 2009Q1

REPORT INFORMATION
  Report Type: 
  Country: None (occurrence: None)
  Receive Date: 20090313
  Receipt Date: 20090311
  Transmission Date: 20090719
  Serious: Yes (Hospitalization)
  Sender: FDA-Public Use
  Company Number: FR-WYE-G03298509

PATIENT
  Sex: Male
  Weight: 16 kg

DRUGS (5)
  1. ADVIL [Suspect]
     Indication: VIRAL TONSILLITIS
     Dosage: UNKNOWN
     Route: 048
     Dates: start: 20080102, end: 20080101
  2. DOLIPRANE [Suspect]
     Indication: VIRAL TONSILLITIS
     Dosage: UNKNOWN
     Route: 048
     Dates: start: 20080102, end: 20080101
  3. CELESTENE [Suspect]
     Indication: VIRAL TONSILLITIS
     Dosage: 150 DROPS TOTAL DAILY
     Route: 048
     Dates: start: 20080102, end: 20080104
  4. CELESTENE [Suspect]
     Dosage: 300 DROPS TOTAL DAILY
     Route: 048
     Dates: start: 20080105, end: 20080105
  5. CELESTENE [Suspect]
     Dosage: 150 DROPS TOTAL DAILY
     Route: 048
     Dates: start: 20080106, end: 20080106

REACTIONS (6)
  - DIARRHOEA [None]
  - FEEDING DISORDER [None]
  - GASTRITIS [None]
  - MELAENA [None]
  - OESOPHAGITIS [None]
  - RECTAL HAEMORRHAGE [None]
